FAERS Safety Report 18204958 (Version 1)
Quarter: 2020Q3

REPORT INFORMATION
  Report Type: Spontaneous
  Country: US (occurrence: US)
  Receive Date: 20200827
  Receipt Date: 20200827
  Transmission Date: 20201103
  Serious: Yes (Other)
  Sender: FDA-Public Use
  Company Number: US-ASTRAZENECA-2020SF05982

PATIENT
  Sex: Male

DRUGS (7)
  1. BUDESONIDE AND FORMOTEROL [Suspect]
     Active Substance: BUDESONIDE\FORMOTEROL
     Dosage: 160/4.5 MCG, UNKNOWN DOSE AND FREQUENCY
     Route: 055
  2. ATIVAN [Concomitant]
     Active Substance: LORAZEPAM
     Indication: PANIC DISORDER
     Route: 065
  3. TUDORZA [Interacting]
     Active Substance: ACLIDINIUM BROMIDE
     Route: 055
     Dates: start: 2020
  4. BUDESONIDE AND FORMOTEROL [Interacting]
     Active Substance: BUDESONIDE\FORMOTEROL
     Dosage: 160/4.5 MCG, UNKNOWN DOSE AND FREQUENCY
     Route: 055
  5. LISINOPRIL. [Concomitant]
     Active Substance: LISINOPRIL
     Indication: BLOOD PRESSURE ABNORMAL
     Route: 048
  6. PROAIR HFA [Concomitant]
     Active Substance: ALBUTEROL SULFATE
     Route: 065
  7. FLOVENT [Concomitant]
     Active Substance: FLUTICASONE PROPIONATE
     Route: 065

REACTIONS (10)
  - Viral infection [Unknown]
  - Eye disorder [Not Recovered/Not Resolved]
  - Panic disorder [Unknown]
  - Oropharyngeal discomfort [Unknown]
  - Thyroiditis [Not Recovered/Not Resolved]
  - Anti-thyroid antibody [Not Recovered/Not Resolved]
  - Basedow^s disease [Not Recovered/Not Resolved]
  - Mumps [Unknown]
  - Drug interaction [Unknown]
  - Vocal cord inflammation [Not Recovered/Not Resolved]

NARRATIVE: CASE EVENT DATE: 202008
